FAERS Safety Report 9637362 (Version 3)
Quarter: 2013Q4

REPORT INFORMATION
  Report Type: Spontaneous
  Country: JP (occurrence: JP)
  Receive Date: 20131022
  Receipt Date: 20131029
  Transmission Date: 20140711
  Serious: Yes (Other)
  Sender: FDA-Public Use
  Company Number: PHHY2013JP113104

PATIENT
  Sex: Male

DRUGS (3)
  1. TEGRETOL [Suspect]
     Indication: CONVULSION
     Dosage: UNK UKN, UNK
     Route: 048
  2. TEGRETOL [Suspect]
     Indication: CHEMOTHERAPY
  3. TEGRETOL [Suspect]
     Indication: RADIOTHERAPY

REACTIONS (2)
  - Neoplasm progression [Unknown]
  - Dysphagia [Not Recovered/Not Resolved]
